FAERS Safety Report 5961020-9 (Version None)
Quarter: 2008Q4

REPORT INFORMATION
  Report Type: 
  Country: None (occurrence: None)
  Receive Date: 20081121
  Receipt Date: 20080509
  Transmission Date: 20090506
  Serious: No
  Sender: FDA-Public Use
  Company Number: A0727232A

PATIENT
  Age: 61 Year
  Sex: Female

DRUGS (7)
  1. LANOXIN [Suspect]
     Indication: CARDIAC FAILURE
     Dosage: .125MG PER DAY
     Route: 048
     Dates: start: 20040101
  2. TOPROL-XL [Concomitant]
  3. PRAVASTATIN [Concomitant]
  4. LEVOTHYROXINE SODIUM [Concomitant]
  5. ALLOPURINOL [Concomitant]
  6. FUROSEMIDE [Concomitant]
  7. LISINOPRIL [Concomitant]

REACTIONS (1)
  - BLOOD CREATINE ABNORMAL [None]
